FAERS Safety Report 13191695 (Version 1)
Quarter: 2017Q1

REPORT INFORMATION
  Report Type: Spontaneous
  Country: US (occurrence: US)
  Receive Date: 20170206
  Receipt Date: 20170206
  Transmission Date: 20170428
  Serious: Yes (Other)
  Sender: FDA-Public Use
  Company Number: None

PATIENT
  Age: 62 Year
  Sex: Female
  Weight: 182 kg

DRUGS (21)
  1. TRAZODONE [Concomitant]
     Active Substance: TRAZODONE HYDROCHLORIDE
  2. STOOL SOFTNERS [Concomitant]
  3. ATARAX [Concomitant]
     Active Substance: HYDROXYZINE HYDROCHLORIDE
  4. RESTASIS [Concomitant]
     Active Substance: CYCLOSPORINE
  5. LATUDA [Suspect]
     Active Substance: LURASIDONE HYDROCHLORIDE
     Indication: SCHIZOAFFECTIVE DISORDER
     Route: 048
     Dates: start: 20160608, end: 20160804
  6. CLONIDINE. [Concomitant]
     Active Substance: CLONIDINE
  7. GABAPENTIN. [Concomitant]
     Active Substance: GABAPENTIN
  8. WOMEN OVER 55 MULTIVITAMIN [Concomitant]
  9. ROBAXIN [Concomitant]
     Active Substance: METHOCARBAMOL
  10. VALTREX [Concomitant]
     Active Substance: VALACYCLOVIR HYDROCHLORIDE
  11. BLINK TEARS LUBRICATING EYE DROPS [Concomitant]
  12. EPIPEN [Concomitant]
     Active Substance: EPINEPHRINE
  13. KLOR-CON [Concomitant]
     Active Substance: POTASSIUM CHLORIDE
  14. LOTEMAX OPTHALMIC GEL [Concomitant]
  15. CYMBALTA [Concomitant]
     Active Substance: DULOXETINE HYDROCHLORIDE
  16. FRESH KOTE LUBRICANT EYE DROPS [Concomitant]
  17. BIOTENE DRY MOUTH ORAL RINSE [Concomitant]
     Active Substance: CETYLPYRIDINIUM CHLORIDE
  18. LORAZEPAM. [Concomitant]
     Active Substance: LORAZEPAM
  19. PROAIR HFA [Concomitant]
     Active Substance: ALBUTEROL SULFATE
  20. SUPER B-COMPLEX [Concomitant]
  21. HYDROCHLOROTHIAZIDE. [Concomitant]
     Active Substance: HYDROCHLOROTHIAZIDE

REACTIONS (2)
  - Vision blurred [None]
  - Visual acuity reduced [None]

NARRATIVE: CASE EVENT DATE: 20160718
